FAERS Safety Report 8723420 (Version 2)
Quarter: 2012Q4

REPORT INFORMATION
  Report Type: 
  Country: US (occurrence: US)
  Receive Date: 20120814
  Receipt Date: 20121221
  Transmission Date: 20130627
  Serious: No
  Sender: FDA-Public Use
  Company Number: US-ASTRAZENECA-2012SE44779

PATIENT
  Sex: Female

DRUGS (2)
  1. ATENOLOL [Suspect]
     Route: 065
  2. NEXIUM [Suspect]
     Route: 048

REACTIONS (2)
  - Diabetes mellitus [Unknown]
  - Drug ineffective [Unknown]
